FAERS Safety Report 18837743 (Version 4)
Quarter: 2021Q3

REPORT INFORMATION
  Report Type: Spontaneous
  Country: MX (occurrence: MX)
  Receive Date: 20210203
  Receipt Date: 20210811
  Transmission Date: 20211014
  Serious: Yes (Death, Other)
  Sender: FDA-Public Use
  Company Number: MX-BAYER-2021-050610

PATIENT
  Age: 16 Year
  Sex: Male

DRUGS (1)
  1. LAROTRECTINIB [Suspect]
     Active Substance: LAROTRECTINIB
     Indication: GLIOBLASTOMA MULTIFORME
     Dosage: 100 MG, BID
     Route: 048
     Dates: start: 20200803, end: 20210201

REACTIONS (2)
  - Back pain [Recovered/Resolved]
  - Glioblastoma multiforme [Fatal]

NARRATIVE: CASE EVENT DATE: 202010
